FAERS Safety Report 5263967-8 (Version None)
Quarter: 2007Q1

REPORT INFORMATION
  Report Type: 
  Country: None (occurrence: None)
  Receive Date: 20070313
  Receipt Date: 20070227
  Transmission Date: 20070707
  Serious: Yes (Other)
  Sender: FDA-Public Use
  Company Number: BEWYE872818DEC06

PATIENT
  Age: 62 Year
  Sex: Female
  Weight: 51 kg

DRUGS (5)
  1. ENBREL [Suspect]
     Indication: RHEUMATOID ARTHRITIS
     Route: 058
     Dates: start: 20060804, end: 20061106
  2. CHLOROQUINE [Concomitant]
     Indication: RHEUMATOID ARTHRITIS
     Dosage: 1 CAPSULE/DAY
     Route: 048
  3. ROFENID [Concomitant]
     Indication: RHEUMATOID ARTHRITIS
     Dosage: 1 TABLET/DAY
     Route: 048
  4. MEDROL [Concomitant]
     Route: 048
  5. SALAZOPYRINE [Concomitant]
     Indication: RHEUMATOID ARTHRITIS
     Route: 048

REACTIONS (1)
  - SCLERITIS [None]
